FAERS Safety Report 9236723 (Version 1)
Quarter: 2013Q2

REPORT INFORMATION
  Report Type: Report from Study
  Country: HU (occurrence: HU)
  Receive Date: 20130417
  Receipt Date: 20130417
  Transmission Date: 20140414
  Serious: Yes (Hospitalization)
  Sender: FDA-Public Use
  Company Number: HU-GLAXOSMITHKLINE-B0878590A

PATIENT
  Age: 81 Year
  Sex: Female

DRUGS (5)
  1. SERETIDE DISKUS [Suspect]
     Indication: CHRONIC OBSTRUCTIVE PULMONARY DISEASE
     Dosage: 1PUFF SEE DOSAGE TEXT
     Route: 055
     Dates: start: 1990, end: 20130227
  2. BETASERC [Concomitant]
     Dosage: 24MG THREE TIMES PER DAY
  3. NOOTROPIL [Concomitant]
     Dosage: 60MG PER DAY
  4. ASPIRIN PROTECT [Concomitant]
  5. FRONTIN [Concomitant]
     Dosage: 25MG PER DAY

REACTIONS (2)
  - Pneumonia [Recovered/Resolved]
  - Dyspnoea [Recovered/Resolved]
